FAERS Safety Report 4459574-7 (Version None)
Quarter: 2004Q3

REPORT INFORMATION
  Report Type: 
  Country: None (occurrence: None)
  Receive Date: 20040910
  Receipt Date: 20040608
  Transmission Date: 20050211
  Serious: No
  Sender: FDA-Public Use
  Company Number: 2004212084US

PATIENT
  Age: 37 Year
  Sex: Female

DRUGS (1)
  1. BEXTRA [Suspect]
     Indication: JOINT SPRAIN
     Dosage: 10 MG, BID,
     Dates: start: 20040319, end: 20040426

REACTIONS (1)
  - THROMBOCYTOPENIA [None]
